FAERS Safety Report 9486510 (Version 2)
Quarter: 2013Q3

REPORT INFORMATION
  Report Type: Spontaneous
  Country: US (occurrence: US)
  Receive Date: 20130829
  Receipt Date: 20130903
  Transmission Date: 20140515
  Serious: Yes (Death, Other)
  Sender: FDA-Public Use
  Company Number: US-B.I. PHARMACEUTICALS,INC./RIDGEFIELD-2013-BI-26613BP

PATIENT
  Sex: Female

DRUGS (2)
  1. PRADAXA [Suspect]
     Indication: ATRIAL FIBRILLATION
     Dosage: 300 MG
     Route: 048
     Dates: start: 201308, end: 20130821
  2. AMIODARONE [Concomitant]
     Indication: HEART RATE
     Dosage: 800 MG
     Route: 048
     Dates: end: 20130821

REACTIONS (4)
  - Cardiac arrest [Fatal]
  - Nausea [Not Recovered/Not Resolved]
  - Dyspepsia [Not Recovered/Not Resolved]
  - International normalised ratio increased [Not Recovered/Not Resolved]
